FAERS Safety Report 10155368 (Version 1)
Quarter: 2014Q2

REPORT INFORMATION
  Report Type: Spontaneous
  Country: DE (occurrence: DE)
  Receive Date: 20140506
  Receipt Date: 20140506
  Transmission Date: 20141212
  Serious: Yes (Other)
  Sender: FDA-Public Use
  Company Number: DE-SHIRE-DE201401694

PATIENT
  Sex: Male

DRUGS (1)
  1. ELVANSE [Suspect]
     Indication: PRODUCT USED FOR UNKNOWN INDICATION
     Dosage: 30 MG, UNKNOWN
     Route: 048
     Dates: start: 201307

REACTIONS (2)
  - Bone metabolism disorder [Not Recovered/Not Resolved]
  - Finger deformity [Not Recovered/Not Resolved]
